FAERS Safety Report 7381469-X (Version None)
Quarter: 2011Q1

REPORT INFORMATION
  Report Type: 
  Country: None (occurrence: None)
  Receive Date: 20110329
  Receipt Date: 20110316
  Transmission Date: 20110831
  Serious: Yes (Life-Threatening, Hospitalization, Other)
  Sender: FDA-Public Use
  Company Number: JP-PFIZER INC-2011066338

PATIENT
  Age: 67 Year
  Sex: Female

DRUGS (18)
  1. VINCRISTINE SULFATE [Suspect]
     Dosage: 1.73 MG, EVERY 3 WEEKS
     Route: 041
     Dates: start: 20110118, end: 20110118
  2. GRAN [Suspect]
     Indication: NEUTROPENIA
     Dosage: 75MCG, 1X/DAY
     Route: 058
     Dates: start: 20110123, end: 20110130
  3. VINCRISTINE SULFATE [Suspect]
     Indication: MYCOSIS FUNGOIDES
     Dosage: 1.73 MG, EVERY 3 WEEKS
     Route: 041
     Dates: start: 20101228, end: 20101228
  4. MAXIPIME [Concomitant]
     Dosage: 1 G, 2X/DAY
     Route: 042
     Dates: start: 20110119, end: 20110119
  5. ALLELOCK [Concomitant]
     Dosage: 5 MG, 2X/DAY
     Route: 048
     Dates: start: 20110119, end: 20110208
  6. EMEND [Concomitant]
     Dosage: 125 MG, 1X/DAY
     Route: 048
     Dates: start: 20110118, end: 20110121
  7. ADRIACIN [Suspect]
     Indication: MYCOSIS FUNGOIDES
     Dosage: 62 MG, EVERY 3 WEEKS
     Route: 041
     Dates: start: 20101228, end: 20101228
  8. CYCLOPHOSPHAMIDE [Suspect]
     Dosage: 925 MG, EVERY 3 WEEKS
     Route: 041
     Dates: start: 20110118, end: 20110118
  9. KYTRIL [Concomitant]
     Dosage: 1 MG, EVERY 3 WEEKS
     Route: 042
     Dates: start: 20101228, end: 20101228
  10. MAXIPIME [Concomitant]
     Dosage: 1 G, 2X/DAY
     Route: 042
     Dates: start: 20110111, end: 20110118
  11. ADRIACIN [Suspect]
     Dosage: 62 MG, EVERY 3 WEEKS
     Route: 041
     Dates: start: 20110118, end: 20110118
  12. OMEPRAL [Concomitant]
     Dosage: 20 MG, 1X/DAY
     Route: 048
     Dates: start: 20110118, end: 20110122
  13. KYTRIL [Concomitant]
     Dosage: 1 MG, EVERY 3 WEEKS
     Route: 042
     Dates: start: 20110118, end: 20110118
  14. CALONAL [Concomitant]
     Dosage: 400 MG, UNK
     Route: 048
     Dates: start: 20110131, end: 20110204
  15. PREDONINE [Concomitant]
     Dosage: 100 MG, 2X/DAY
     Route: 048
     Dates: start: 20101228, end: 20110101
  16. CYCLOPHOSPHAMIDE [Suspect]
     Indication: MYCOSIS FUNGOIDES
     Dosage: 925 MG, EVERY 3 WEEKS
     Route: 041
     Dates: start: 20101228, end: 20101228
  17. LYRICA [Concomitant]
     Dosage: 75 MG, 2X/DAY
     Route: 048
     Dates: start: 20101229, end: 20110209
  18. MAXIPIME [Concomitant]
     Dosage: 1 G, 2X/DAY
     Route: 042
     Dates: start: 20110126, end: 20110203

REACTIONS (2)
  - PNEUMOCYSTIS JIROVECI PNEUMONIA [None]
  - FEBRILE NEUTROPENIA [None]
